FAERS Safety Report 8005683-5 (Version None)
Quarter: 2011Q4

REPORT INFORMATION
  Report Type: 
  Country: None (occurrence: None)
  Receive Date: 20111223
  Receipt Date: 20111217
  Transmission Date: 20120403
  Serious: Yes (Hospitalization, Other)
  Sender: FDA-Public Use
  Company Number: US-SANOFI-AVENTIS-2011SA083703

PATIENT
  Sex: Male

DRUGS (3)
  1. AMARYL [Suspect]
     Dates: start: 20111201
  2. INSULIN [Concomitant]
  3. METFORMIN HCL [Suspect]

REACTIONS (3)
  - PANCREATITIS [None]
  - GASTROINTESTINAL INFECTION [None]
  - DRUG INEFFECTIVE [None]
